FAERS Safety Report 11371873 (Version 8)
Quarter: 2016Q2

REPORT INFORMATION
  Report Type: Spontaneous
  Country: US (occurrence: US)
  Receive Date: 20150812
  Receipt Date: 20160623
  Transmission Date: 20160815
  Serious: Yes (Hospitalization, Other)
  Sender: FDA-Public Use
  Company Number: US-GLAXOSMITHKLINE-US2015GSK115566

PATIENT
  Age: 78 Year
  Sex: Female

DRUGS (3)
  1. ADVAIR DISKUS [Suspect]
     Active Substance: FLUTICASONE PROPIONATE\SALMETEROL XINAFOATE
     Indication: CHRONIC OBSTRUCTIVE PULMONARY DISEASE
     Dosage: UNK
     Dates: start: 2005
  2. ADVAIR DISKUS [Suspect]
     Active Substance: FLUTICASONE PROPIONATE\SALMETEROL XINAFOATE
     Dosage: UNK
     Dates: start: 1998
  3. ADVAIR DISKUS [Suspect]
     Active Substance: FLUTICASONE PROPIONATE\SALMETEROL XINAFOATE
     Dosage: 250 UG, UNK
     Route: 055

REACTIONS (9)
  - Cerebrovascular accident [Unknown]
  - Hip fracture [Unknown]
  - Fall [Unknown]
  - Surgery [Unknown]
  - Therapeutic procedure [Unknown]
  - Emotional distress [Unknown]
  - Ill-defined disorder [Unknown]
  - Arterial therapeutic procedure [Unknown]
  - Speech disorder [Unknown]

NARRATIVE: CASE EVENT DATE: 20140324
